FAERS Safety Report 7132221-1 (Version None)
Quarter: 2010Q4

REPORT INFORMATION
  Report Type: 
  Country: None (occurrence: None)
  Receive Date: 20101202
  Receipt Date: 20101129
  Transmission Date: 20110411
  Serious: Yes (Hospitalization)
  Sender: FDA-Public Use
  Company Number: CH-BRISTOL-MYERS SQUIBB COMPANY-15344344

PATIENT
  Age: 48 Year
  Sex: Male

DRUGS (3)
  1. ORENCIA [Suspect]
     Indication: RHEUMATOID ARTHRITIS
     Dosage: WEEK 0, 2, 4, AND THEN EVERY 4 WEEKS
     Route: 042
     Dates: start: 20100610, end: 20100809
  2. METHOTREXATE [Suspect]
     Route: 058
     Dates: start: 20050505, end: 20100809
  3. SPIRICORT [Concomitant]

REACTIONS (1)
  - PLEURISY [None]
